FAERS Safety Report 10470842 (Version 5)
Quarter: 2015Q3

REPORT INFORMATION
  Report Type: Spontaneous
  Country: US (occurrence: US)
  Receive Date: 20140923
  Receipt Date: 20150716
  Transmission Date: 20151125
  Serious: Yes (Hospitalization, Other)
  Sender: FDA-Public Use
  Company Number: US-MERCK-1409USA010683

PATIENT
  Sex: Female
  Weight: 99.77 kg

DRUGS (3)
  1. JANUVIA [Suspect]
     Active Substance: SITAGLIPTIN PHOSPHATE
     Dosage: 100 MG, QD
     Route: 048
     Dates: start: 20120119
  2. JANUVIA [Suspect]
     Active Substance: SITAGLIPTIN PHOSPHATE
     Indication: TYPE 2 DIABETES MELLITUS
     Dosage: 50 MG, QD
     Route: 048
     Dates: start: 20110113, end: 20120118
  3. JANUMET [Suspect]
     Active Substance: METFORMIN HYDROCHLORIDE\SITAGLIPTIN PHOSPHATE
     Indication: TYPE 2 DIABETES MELLITUS
     Dosage: 50/500MG, QD
     Route: 048
     Dates: start: 20101105, end: 20110112

REACTIONS (35)
  - Panic attack [Unknown]
  - Sleep apnoea syndrome [Unknown]
  - Ulcer [Unknown]
  - Pancreatic carcinoma metastatic [Unknown]
  - Cholecystectomy [Unknown]
  - Nausea [Unknown]
  - Hypothyroidism [Unknown]
  - Appendicectomy [Unknown]
  - Oedema peripheral [Unknown]
  - Metastases to lymph nodes [Unknown]
  - Dehydration [Unknown]
  - Spinal osteoarthritis [Unknown]
  - Pancreatectomy [Unknown]
  - Joint arthroplasty [Unknown]
  - Biliary dyskinesia [Unknown]
  - Asthma [Unknown]
  - Diverticulum [Unknown]
  - Glaucoma [Unknown]
  - Chest pain [Unknown]
  - Arteriosclerosis coronary artery [Unknown]
  - Splenectomy [Unknown]
  - Aortic aneurysm [Unknown]
  - Pneumonia [Unknown]
  - Arthroscopy [Unknown]
  - Radiotherapy [Unknown]
  - Hypertension [Unknown]
  - Adverse event [Unknown]
  - Ductal adenocarcinoma of pancreas [Unknown]
  - Skin cancer [Unknown]
  - Lymphadenectomy [Unknown]
  - Tonsillectomy [Unknown]
  - Hypercholesterolaemia [Unknown]
  - Osteoarthritis [Unknown]
  - Flank pain [Unknown]
  - Cognitive disorder [Unknown]

NARRATIVE: CASE EVENT DATE: 20130101
